FAERS Safety Report 7945793-1 (Version None)
Quarter: 2011Q4

REPORT INFORMATION
  Report Type: 
  Country: None (occurrence: None)
  Receive Date: 20111129
  Receipt Date: 20111124
  Transmission Date: 20120403
  Serious: Yes (Other)
  Sender: FDA-Public Use
  Company Number: JP-PFIZER INC-2011287842

PATIENT
  Age: 45 Year
  Sex: Female

DRUGS (1)
  1. LYRICA [Suspect]
     Dosage: 150 MG, 2X/DAY
     Route: 048
     Dates: start: 20110801

REACTIONS (5)
  - VARICOSE VEIN OPERATION [None]
  - DEAFNESS [None]
  - DRUG EFFECT DELAYED [None]
  - WEIGHT INCREASED [None]
  - DRUG EFFECT DECREASED [None]
